FAERS Safety Report 10194230 (Version 1)
Quarter: 2014Q2

REPORT INFORMATION
  Report Type: Report from Study
  Country: GR (occurrence: GR)
  Receive Date: 20140525
  Receipt Date: 20140525
  Transmission Date: 20141212
  Serious: Yes (Other)
  Sender: FDA-Public Use
  Company Number: PHHO2014GR007388

PATIENT
  Sex: 0

DRUGS (9)
  1. SOM230 [Suspect]
     Indication: PITUITARY-DEPENDENT CUSHING^S SYNDROME
     Dosage: 600 UG, TID
     Route: 058
  2. SOM230 [Suspect]
     Dosage: 300 UG, TID
     Route: 058
  3. SOM230 [Suspect]
     Dosage: 300 UG, QD
     Route: 058
  4. METFORMIN [Concomitant]
     Indication: DIABETES MELLITUS
     Route: 048
  5. SITAGLIPTIN [Concomitant]
     Indication: DIABETES MELLITUS
     Route: 048
  6. GLICLAZIDE [Concomitant]
     Indication: DIABETES MELLITUS
  7. TELMISARTAN [Concomitant]
     Indication: HYPERTENSION
     Dosage: UNK
     Route: 048
  8. SIMVASTATIN [Concomitant]
     Indication: HYPERTENSION
     Dosage: UNK
     Route: 048
  9. L-THYROXIN [Concomitant]
     Indication: HYPOTHYROIDISM
     Dosage: 62 UG, QD

REACTIONS (1)
  - Thyroiditis subacute [Recovering/Resolving]
